FAERS Safety Report 7710338-8 (Version None)
Quarter: 2011Q3

REPORT INFORMATION
  Report Type: 
  Country: None (occurrence: None)
  Receive Date: 20110825
  Receipt Date: 20110816
  Transmission Date: 20111222
  Serious: Yes (Other)
  Sender: FDA-Public Use
  Company Number: US-PFIZER INC-2011090437

PATIENT
  Sex: Male
  Weight: 76.644 kg

DRUGS (8)
  1. VICODIN [Concomitant]
     Indication: PAIN
     Dosage: 500 MG, AS NEEDED
     Route: 048
     Dates: start: 20061115
  2. MOROCTOCOG ALFA [Suspect]
     Dosage: 2060 IU AT 7PM, ON DEMAND
     Route: 042
     Dates: start: 20100422, end: 20100422
  3. MOROCTOCOG ALFA [Suspect]
     Dosage: 2060 IU AT 5AM, ON DEMAND
     Route: 042
     Dates: start: 20100422, end: 20100422
  4. MOROCTOCOG ALFA [Suspect]
     Dosage: 2060 IU AT 9PM, ON DEMAND
     Route: 042
     Dates: start: 20100421, end: 20100421
  5. CELEBREX [Concomitant]
     Indication: ARTHRITIS
     Dosage: 200 MG, 1X/DAY
     Route: 048
     Dates: start: 20091013
  6. MOROCTOCOG ALFA [Suspect]
     Indication: HAEMARTHROSIS
     Dosage: 2000 IU/KG ON DEMAND, FREQUENCY UNKNOWN
     Dates: start: 20100417
  7. MOROCTOCOG ALFA [Suspect]
     Indication: DRUG EFFECT DECREASED
     Dosage: 2060 IU AT 5PM, ON DEMAND
     Route: 042
     Dates: start: 20100421, end: 20100421
  8. ATRIPLA [Concomitant]
     Indication: HIV INFECTION
     Dosage: 600, 200, 300 MG
     Route: 048
     Dates: start: 20061108

REACTIONS (1)
  - DRUG EFFECT DECREASED [None]
